FAERS Safety Report 6071440-2 (Version None)
Quarter: 2009Q1

REPORT INFORMATION
  Report Type: 
  Country: None (occurrence: None)
  Receive Date: 20090204
  Receipt Date: 20090119
  Transmission Date: 20090719
  Serious: Yes (Death)
  Sender: FDA-Public Use
  Company Number: 8040638

PATIENT
  Age: 24 Year
  Sex: Male

DRUGS (6)
  1. HYDROXYZINE PAMOATE [Suspect]
     Dosage: PO
     Route: 048
  2. ACETAMINOPHEN AND HYDROCODONE BITARTRATE [Suspect]
  3. HYDROCODONE BITARTRATE [Suspect]
  4. METHADONE HCL [Suspect]
  5. BUSPIRONE HCL [Suspect]
  6. ETHANOL [Suspect]

REACTIONS (4)
  - CARDIAC ARREST [None]
  - COMPLETED SUICIDE [None]
  - MULTIPLE DRUG OVERDOSE INTENTIONAL [None]
  - RESPIRATORY ARREST [None]
